FAERS Safety Report 7901767-8 (Version None)
Quarter: 2011Q4

REPORT INFORMATION
  Report Type: 
  Country: None (occurrence: None)
  Receive Date: 20111108
  Receipt Date: 20111026
  Transmission Date: 20120403
  Serious: Yes (Hospitalization, Other)
  Sender: FDA-Public Use
  Company Number: PHHY2011BR95150

PATIENT
  Sex: Male

DRUGS (6)
  1. DIOVAN [Suspect]
     Dosage: 320 MG, UNK
  2. GLYBURIDE [Concomitant]
     Dosage: 5 MG, UNK
  3. PAROXETINE HCL [Concomitant]
     Dosage: 20 MG, UNK
  4. DIOVAN [Suspect]
     Dosage: 160 MG, UNK
  5. METFFORMIN HYDROCHLORIDE [Suspect]
     Dosage: 850 MG, UNK
  6. MEMANTINE HYDROCHLORIDE [Concomitant]

REACTIONS (3)
  - DIABETES MELLITUS [None]
  - HYPERTENSION [None]
  - BLOOD PRESSURE FLUCTUATION [None]
